FAERS Safety Report 8618134-4 (Version None)
Quarter: 2012Q3

REPORT INFORMATION
  Report Type: 
  Country: None (occurrence: None)
  Receive Date: 20120824
  Receipt Date: 20110921
  Transmission Date: 20120928
  Serious: Yes (Hospitalization)
  Sender: FDA-Public Use
  Company Number: US-ASTRAZENECA-2011SE49547

PATIENT
  Sex: Female
  Weight: 58.1 kg

DRUGS (1)
  1. SYMBICORT [Suspect]
     Indication: ASTHMA
     Dosage: ONE PUFF DAILY
     Route: 055
     Dates: start: 20110511

REACTIONS (3)
  - INCORRECT DOSE ADMINISTERED [None]
  - ASTHMA [None]
  - DRUG DOSE OMISSION [None]
